FAERS Safety Report 17765255 (Version 10)
Quarter: 2023Q2

REPORT INFORMATION
  Report Type: Spontaneous
  Country: US (occurrence: US)
  Receive Date: 20200511
  Receipt Date: 20230413
  Transmission Date: 20230722
  Serious: Yes (Hospitalization)
  Sender: FDA-Public Use
  Company Number: US-PFIZER INC-2020185439

PATIENT
  Age: 56 Year
  Sex: Male

DRUGS (4)
  1. XELJANZ XR [Suspect]
     Active Substance: TOFACITINIB CITRATE
     Indication: Rheumatoid arthritis
     Dosage: 11 MG, DAILY
     Route: 048
     Dates: start: 2017
  2. XELJANZ XR [Suspect]
     Active Substance: TOFACITINIB CITRATE
     Dosage: 11 MG, DAILY
     Route: 048
     Dates: start: 2020
  3. XELJANZ XR [Suspect]
     Active Substance: TOFACITINIB CITRATE
     Dosage: 11 MG, DAILY
     Route: 048
     Dates: start: 202207, end: 202303
  4. ORENCIA [Concomitant]
     Active Substance: ABATACEPT
     Dosage: UNK
     Dates: start: 20230312

REACTIONS (10)
  - Gastric disorder [Unknown]
  - Vomiting [Unknown]
  - Drug ineffective [Unknown]
  - Swelling [Recovered/Resolved]
  - Fatigue [Unknown]
  - Illness [Unknown]
  - Pain in extremity [Unknown]
  - Arthritis [Unknown]
  - Product dose omission issue [Unknown]
  - Product dose omission in error [Unknown]
